FAERS Safety Report 11200912 (Version 1)
Quarter: 2015Q2

REPORT INFORMATION
  Report Type: Report from Study
  Country: US (occurrence: CN)
  Receive Date: 20150618
  Receipt Date: 20150618
  Transmission Date: 20150821
  Serious: Yes (Congenital Anomaly)
  Sender: FDA-Public Use
  Company Number: CN-FRI-1000077489

PATIENT

DRUGS (1)
  1. LINACLOTIDE [Suspect]
     Active Substance: LINACLOTIDE
     Indication: IRRITABLE BOWEL SYNDROME
     Dosage: 290 MCG
     Route: 064
     Dates: start: 20140708, end: 20141008

REACTIONS (1)
  - Trisomy 21 [Recovered/Resolved]

NARRATIVE: CASE EVENT DATE: 201502
